FAERS Safety Report 7559780-9 (Version None)
Quarter: 2011Q2

REPORT INFORMATION
  Report Type: 
  Country: None (occurrence: None)
  Receive Date: 20110621
  Receipt Date: 20110615
  Transmission Date: 20111010
  Serious: Yes (Other)
  Sender: FDA-Public Use
  Company Number: US-ROCHE-782715

PATIENT
  Sex: Male

DRUGS (2)
  1. ACCUTANE [Suspect]
     Route: 065
     Dates: start: 19960101
  2. AMNESTEEM [Suspect]
     Route: 065
     Dates: start: 20100101

REACTIONS (2)
  - ANXIETY [None]
  - INFLAMMATORY BOWEL DISEASE [None]
